FAERS Safety Report 4826204-1 (Version None)
Quarter: 2005Q4

REPORT INFORMATION
  Report Type: 
  Country: None (occurrence: None)
  Receive Date: 20051014
  Receipt Date: 20050719
  Transmission Date: 20060501
  Serious: No
  Sender: FDA-Public Use
  Company Number: 2005SP001945

PATIENT
  Age: 49 Year
  Sex: Female
  Weight: 106.5953 kg

DRUGS (5)
  1. LUNESTA [Suspect]
     Indication: INSOMNIA
     Dosage: 3 MG;HS;ORAL
     Route: 048
     Dates: start: 20050715
  2. CARDIZEM [Concomitant]
  3. ENALAPRIL [Concomitant]
  4. EFFEXOR [Concomitant]
  5. SEROQUEL [Concomitant]

REACTIONS (2)
  - DYSGEUSIA [None]
  - INSOMNIA [None]
